FAERS Safety Report 6678708-7 (Version None)
Quarter: 2010Q2

REPORT INFORMATION
  Report Type: 
  Country: None (occurrence: None)
  Receive Date: 20100413
  Receipt Date: 20100330
  Transmission Date: 20101027
  Serious: Yes (Other)
  Sender: FDA-Public Use
  Company Number: PHHY2010US10557

PATIENT
  Sex: Female

DRUGS (7)
  1. GENTEAL (NVO) [Suspect]
     Indication: DRY EYE
     Dosage: UNK
     Dates: start: 20100215
  2. VYTORIN [Concomitant]
     Dosage: 10 MG-80 MG ONE TABLET/DAY
     Route: 048
     Dates: start: 20091211
  3. LISINOPRIL [Concomitant]
     Dosage: 1 TABLET/ DAY
     Route: 048
     Dates: start: 20091207
  4. NOVOLOG [Concomitant]
     Dosage: UNK
     Dates: start: 20070507
  5. OMEPRAZOLE [Concomitant]
     Dosage: UNK
     Dates: start: 20070507
  6. GABAPENTIN [Concomitant]
     Dosage: UNK
     Dates: start: 20070507
  7. SYSTANE (PROPYLENE GLYCOL/MACROGOL) [Concomitant]
     Dosage: 0.3%-0.4%
     Dates: start: 20091230

REACTIONS (4)
  - EXPIRED DRUG ADMINISTERED [None]
  - PHOTOPHOBIA [None]
  - VISUAL ACUITY REDUCED [None]
  - VITREOUS FLOATERS [None]
